FAERS Safety Report 7207518-7 (Version None)
Quarter: 2011Q1

REPORT INFORMATION
  Report Type: 
  Country: None (occurrence: None)
  Receive Date: 20110103
  Receipt Date: 20101223
  Transmission Date: 20110831
  Serious: Yes (Hospitalization, Other)
  Sender: FDA-Public Use
  Company Number: US-JNJFOC-20090609417

PATIENT
  Sex: Female

DRUGS (7)
  1. LEVAQUIN [Suspect]
     Route: 065
  2. LEVAQUIN [Suspect]
     Indication: BRONCHITIS
     Route: 065
  3. LEVAQUIN [Suspect]
     Indication: SINUSITIS
     Route: 065
  4. PREDNISONE [Suspect]
     Indication: ANTIINFLAMMATORY THERAPY
  5. LEVAQUIN [Suspect]
     Route: 065
  6. LEVAQUIN [Suspect]
     Route: 065
  7. LEVAQUIN [Suspect]
     Indication: UPPER RESPIRATORY TRACT INFECTION
     Route: 065

REACTIONS (3)
  - TENDON RUPTURE [None]
  - SYNOVIAL RUPTURE [None]
  - TENDON PAIN [None]
